FAERS Safety Report 18016364 (Version 1)
Quarter: 2020Q3

REPORT INFORMATION
  Report Type: Report from Study
  Country: US (occurrence: US)
  Receive Date: 20200713
  Receipt Date: 20200713
  Transmission Date: 20201103
  Serious: Yes (Hospitalization)
  Sender: FDA-Public Use
  Company Number: US-ACTELION-A-NJ2020-200986

PATIENT
  Age: 41 Year
  Sex: Female

DRUGS (1)
  1. OPSUMIT [Suspect]
     Active Substance: MACITENTAN
     Indication: PULMONARY HYPERTENSION
     Dosage: UNK
     Route: 048
     Dates: start: 20190730

REACTIONS (9)
  - Limb discomfort [Unknown]
  - Ear pain [Recovered/Resolved]
  - Osteomyelitis [Recovered/Resolved]
  - Otitis media [Recovered/Resolved]
  - Diabetic ulcer [Unknown]
  - Cough [Recovered/Resolved]
  - Product dose omission issue [Recovered/Resolved]
  - Blood creatinine increased [Unknown]
  - Hypoacusis [Recovered/Resolved]

NARRATIVE: CASE EVENT DATE: 20200104
